FAERS Safety Report 10975073 (Version 1)
Quarter: 2015Q2

REPORT INFORMATION
  Report Type: Spontaneous
  Country: GB (occurrence: GB)
  Receive Date: 20150401
  Receipt Date: 20150401
  Transmission Date: 20150821
  Serious: Yes (Other)
  Sender: FDA-Public Use
  Company Number: PHHY2015GB035447

PATIENT
  Age: 60 Year
  Sex: Male

DRUGS (1)
  1. CHLORPHENAMINE [Suspect]
     Active Substance: CHLORPHENIRAMINE MALEATE
     Indication: SCAN WITH CONTRAST
     Route: 065
     Dates: start: 20141128, end: 20141128

REACTIONS (4)
  - Malaise [Recovering/Resolving]
  - Lip swelling [Recovering/Resolving]
  - Sneezing [Recovering/Resolving]
  - Rhinitis [Recovered/Resolved]

NARRATIVE: CASE EVENT DATE: 20141128
